FAERS Safety Report 25644821 (Version 1)
Quarter: 2025Q3

REPORT INFORMATION
  Report Type: Spontaneous
  Country: US (occurrence: None)
  Receive Date: 20250804
  Receipt Date: 20250804
  Transmission Date: 20251020
  Serious: No
  Sender: FDA-CTU
  Company Number: None

PATIENT
  Age: 17 Month
  Sex: Male

DRUGS (2)
  1. AMBRISENTAN [Suspect]
     Active Substance: AMBRISENTAN
     Indication: Pulmonary arterial hypertension
  2. POLY-VI-SOL/IRON [Concomitant]

REACTIONS (2)
  - Off label use [None]
  - Pulmonary arterial hypertension [None]

NARRATIVE: CASE EVENT DATE: 20250801
